FAERS Safety Report 7817421-7 (Version None)
Quarter: 2011Q4

REPORT INFORMATION
  Report Type: 
  Country: None (occurrence: None)
  Receive Date: 20111012
  Receipt Date: 20110927
  Transmission Date: 20120403
  Serious: Yes (Other)
  Sender: FDA-Public Use
  Company Number: TUK2011A00157

PATIENT
  Age: 69 Year
  Sex: Male

DRUGS (7)
  1. LOSARTAN POTASSIUM [Concomitant]
  2. ASPIRIN [Concomitant]
  3. PIOGLITAZONE HYDROCHLORIDE [Suspect]
     Indication: PRODUCT USED FOR UNKNOWN INDICATION
  4. ATENOLOL [Concomitant]
  5. METFORMIN HCL [Concomitant]
  6. SIMVASTATIN [Concomitant]
  7. RANITIDINE HYDROCHLORIDE [Concomitant]

REACTIONS (1)
  - BLADDER TRANSITIONAL CELL CARCINOMA [None]
